FAERS Safety Report 9369085 (Version 4)
Quarter: 2013Q4

REPORT INFORMATION
  Report Type: Report from Study
  Country: US (occurrence: US)
  Receive Date: 20130626
  Receipt Date: 20131022
  Transmission Date: 20140711
  Serious: No
  Sender: FDA-Public Use
  Company Number: PHEH2013US013554

PATIENT
  Sex: Male
  Weight: 99.32 kg

DRUGS (6)
  1. AFINITOR [Suspect]
     Indication: RENAL CELL CARCINOMA
     Dosage: 10 MG, QD
  2. AFINITOR [Suspect]
     Dosage: 7.5 MG, QD
  3. ADVEL [Concomitant]
     Dosage: UNK UKN, UNK
  4. CITALOPRAM [Concomitant]
     Dosage: UNK UKN, UNK
  5. FOLIC ACID [Concomitant]
     Indication: FOLATE DEFICIENCY
     Dosage: 2 DF, DAILY
  6. FOLIC ACID [Concomitant]
     Dosage: 1 MG, DAILY

REACTIONS (1)
  - Rash [Recovered/Resolved]
